FAERS Safety Report 18606389 (Version 1)
Quarter: 2020Q4

REPORT INFORMATION
  Report Type: Spontaneous
  Country: RU (occurrence: RU)
  Receive Date: 20201211
  Receipt Date: 20201211
  Transmission Date: 20210114
  Serious: No
  Sender: FDA-Public Use
  Company Number: RU-LUPIN PHARMACEUTICALS INC.-2020-10135

PATIENT
  Age: 41 Year
  Sex: Female

DRUGS (11)
  1. OXALIPLATIN. [Concomitant]
     Active Substance: OXALIPLATIN
     Indication: COLORECTAL CANCER
     Dosage: UNK (SIX CYCLES; AS PART OF FOLFOX REGIMEN)
     Route: 065
     Dates: start: 201801, end: 2018
  2. BEVACIZUMAB. [Suspect]
     Active Substance: BEVACIZUMAB
     Dosage: UNK
     Route: 065
     Dates: start: 201907, end: 202001
  3. BINIMETINIB [Suspect]
     Active Substance: BINIMETINIB
     Indication: COLORECTAL CANCER
     Dosage: 30 MILLIGRAM
     Route: 065
     Dates: start: 202004
  4. BEVACIZUMAB. [Suspect]
     Active Substance: BEVACIZUMAB
     Indication: COLORECTAL CANCER
     Dosage: UNK
     Route: 065
     Dates: start: 201811, end: 201905
  5. FLUOROURACIL. [Concomitant]
     Active Substance: FLUOROURACIL
     Indication: COLORECTAL CANCER
     Dosage: SIX CYCLES (AS PART OF FOLFOX REGIMEN)
     Route: 065
     Dates: start: 201801, end: 2018
  6. FOLINIC ACID [Concomitant]
     Active Substance: LEUCOVORIN
     Indication: COLORECTAL CANCER
     Dosage: SIX CYCLES (AS PART OF FOLFOX REGIMEN)
     Route: 065
     Dates: start: 201801, end: 2018
  7. CAPECITABINE. [Concomitant]
     Active Substance: CAPECITABINE
     Dosage: UNK
     Route: 065
     Dates: start: 201907, end: 202001
  8. BEVACIZUMAB. [Suspect]
     Active Substance: BEVACIZUMAB
     Dosage: 7.5 MILLIGRAM/SQ. METER
     Route: 065
     Dates: start: 202004
  9. CAPECITABINE. [Concomitant]
     Active Substance: CAPECITABINE
     Indication: COLORECTAL CANCER
     Dosage: UNK (AS PART OF XELOX REGIMEN)
     Route: 065
     Dates: start: 201811, end: 201905
  10. OXALIPLATIN. [Concomitant]
     Active Substance: OXALIPLATIN
     Dosage: UNK (AS PART OF XELOX REGIMEN)
     Route: 065
     Dates: start: 201811, end: 201905
  11. HYDROXYCHLOROQUINE [Suspect]
     Active Substance: HYDROXYCHLOROQUINE
     Indication: COLORECTAL CANCER
     Dosage: 400 MILLIGRAM
     Route: 065
     Dates: start: 202004

REACTIONS (1)
  - Off label use [Unknown]
